FAERS Safety Report 8839618 (Version 2)
Quarter: 2013Q4

REPORT INFORMATION
  Report Type: Spontaneous
  Country: US (occurrence: US)
  Receive Date: 20121015
  Receipt Date: 20131111
  Transmission Date: 20140711
  Serious: Yes (Hospitalization)
  Sender: FDA-Public Use
  Company Number: US-BAYER-2012-105455

PATIENT
  Age: 15 Year
  Sex: Female
  Weight: 99.77 kg

DRUGS (18)
  1. YASMIN [Suspect]
     Indication: CONTRACEPTION
     Dosage: UNK
     Dates: start: 200410, end: 200606
  2. SYNTHROID [Concomitant]
     Dosage: UNK
     Dates: start: 1994
  3. SYNTHROID [Concomitant]
  4. DDAVP [Concomitant]
     Dosage: UNK
     Dates: start: 1994
  5. HYDROCORT [Concomitant]
     Dosage: UNK
     Dates: start: 1994
  6. METHYLPREDNISOLONE [Concomitant]
     Dosage: 4 MG, DS
  7. CEPHALEXIN [Concomitant]
     Dosage: 250 MG, UNK
  8. ROCEPHIN [Concomitant]
  9. CECLOR [Concomitant]
  10. ZANTAC [Concomitant]
     Dosage: 75 MG, UNK
  11. BROMOCRIPTINE [Concomitant]
  12. GLUCOPHAGE [Concomitant]
     Dosage: 500 MG, UNK
  13. CORTEF [HYDROCORTISONE] [Concomitant]
     Dosage: 10 MG, UNK
  14. TYLENOL [Concomitant]
     Dosage: 325 MG, UNK
  15. ADVIL [Concomitant]
     Dosage: 200 MG, UNK
  16. DARVOCET-N [Concomitant]
  17. MEDROL [Concomitant]
  18. KEFLEX [Concomitant]

REACTIONS (2)
  - Deep vein thrombosis [None]
  - Pulmonary embolism [None]
